FAERS Safety Report 5144267-3 (Version None)
Quarter: 2006Q4

REPORT INFORMATION
  Report Type: 
  Country: None (occurrence: None)
  Receive Date: 20061102
  Receipt Date: 20061102
  Transmission Date: 20070319
  Serious: Yes (Other)
  Sender: FDA-Public Use
  Company Number: None

PATIENT
  Age: 33 Year
  Sex: Female
  Weight: 61.2356 kg

DRUGS (1)
  1. POLYETHYLENE GLYCOL 3350 POWDER 527 GRAMS AFFORDABLE PHARMACEUTICALS L [Suspect]
     Indication: CONSTIPATION
     Dosage: 2-4 TABLESPOONS 1X DAY PO
     Route: 048
     Dates: start: 20061021, end: 20061027

REACTIONS (11)
  - ANXIETY [None]
  - BOWEL MOVEMENT IRREGULARITY [None]
  - DIARRHOEA [None]
  - DYSPEPSIA [None]
  - HYPERSENSITIVITY [None]
  - MALAISE [None]
  - MUSCLE CONTRACTIONS INVOLUNTARY [None]
  - PHARYNGEAL OEDEMA [None]
  - PRURITUS [None]
  - URTICARIA [None]
  - VOMITING [None]
